FAERS Safety Report 24675803 (Version 2)
Quarter: 2024Q4

REPORT INFORMATION
  Report Type: Spontaneous
  Country: US (occurrence: US)
  Receive Date: 20241128
  Receipt Date: 20241205
  Transmission Date: 20250115
  Serious: No
  Sender: BRISTOL-MYERS SQUIBB COMPANY
  Company Number: US-BRISTOL-MYERS SQUIBB COMPANY-2024-186518

PATIENT
  Age: 65 Year

DRUGS (1)
  1. ELIQUIS [Suspect]
     Active Substance: APIXABAN
     Indication: Product used for unknown indication
     Route: 048
     Dates: start: 20240731

REACTIONS (5)
  - Peripheral venous disease [Unknown]
  - Cellulitis [Unknown]
  - Wound complication [Unknown]
  - Decubitus ulcer [Unknown]
  - Fluid retention [Unknown]

NARRATIVE: CASE EVENT DATE: 20241016
